FAERS Safety Report 7402915-9 (Version None)
Quarter: 2011Q2

REPORT INFORMATION
  Report Type: 
  Country: None (occurrence: None)
  Receive Date: 20110408
  Receipt Date: 20110406
  Transmission Date: 20111010
  Serious: No
  Sender: FDA-Public Use
  Company Number: US-TEVA-269476USA

PATIENT
  Age: 49 Year
  Sex: Female

DRUGS (4)
  1. INTERFERON BETA NOS [Suspect]
  2. COPAXONE [Suspect]
     Indication: MULTIPLE SCLEROSIS
     Route: 058
  3. NATALIZUMAB [Suspect]
  4. INFLIXIMAB [Suspect]

REACTIONS (2)
  - ATAXIA [None]
  - ORTHOSTATIC HYPOTENSION [None]
